FAERS Safety Report 16614592 (Version 1)
Quarter: 2019Q3

REPORT INFORMATION
  Report Type: Report from Study
  Country: None (occurrence: US)
  Receive Date: 20190723
  Receipt Date: 20190723
  Transmission Date: 20191004
  Serious: Yes (Other)
  Sender: FDA-Public Use
  Company Number: US-ABBVIE-19K-163-2856653-00

PATIENT
  Age: 69 Year
  Sex: Male
  Weight: 115.77 kg

DRUGS (10)
  1. FLUTICASONE. [Concomitant]
     Active Substance: FLUTICASONE
     Indication: NASAL DISORDER
  2. LOSARTAN POTASSIUM. [Concomitant]
     Active Substance: LOSARTAN POTASSIUM
     Indication: BLOOD PRESSURE MEASUREMENT
  3. HUMIRA [Suspect]
     Active Substance: ADALIMUMAB
     Indication: PSORIATIC ARTHROPATHY
     Dosage: PATIENT ON HUMIRA FOR ATLEAST EIGHT YEARS AGO. PATIENT STOPPED FROM MAY OR  JUN 2018
     Route: 058
     Dates: start: 2010, end: 201806
  4. HUMIRA [Suspect]
     Active Substance: ADALIMUMAB
     Route: 058
     Dates: start: 201811
  5. LEVOTHYROXINE. [Concomitant]
     Active Substance: LEVOTHYROXINE
     Indication: HYPOTHYROIDISM
  6. ATORVASTATIN [Concomitant]
     Active Substance: ATORVASTATIN
     Indication: BLOOD CHOLESTEROL
  7. FOLIC ACID. [Concomitant]
     Active Substance: FOLIC ACID
     Indication: BLOOD DISORDER
  8. BABY ASPIRIN [Concomitant]
     Active Substance: ASPIRIN
     Indication: BLOOD DISORDER
  9. MONTELUKAST [Concomitant]
     Active Substance: MONTELUKAST SODIUM
     Indication: HYPERSENSITIVITY
  10. METHOTREXATE. [Concomitant]
     Active Substance: METHOTREXATE
     Indication: ARTHRITIS

REACTIONS (6)
  - Respiratory disorder [Recovered/Resolved]
  - Rotator cuff syndrome [Recovering/Resolving]
  - Cough [Recovering/Resolving]
  - Hypersensitivity [Not Recovered/Not Resolved]
  - Accident [Unknown]
  - Fall [Recovering/Resolving]

NARRATIVE: CASE EVENT DATE: 201803
